FAERS Safety Report 7617797-X (Version None)
Quarter: 2011Q3

REPORT INFORMATION
  Report Type: 
  Country: None (occurrence: None)
  Receive Date: 20110718
  Receipt Date: 20110707
  Transmission Date: 20111222
  Serious: Yes (Hospitalization, Other)
  Sender: FDA-Public Use
  Company Number: US-BAYER-2011-001433

PATIENT
  Age: 17 Year
  Sex: Female
  Weight: 63 kg

DRUGS (13)
  1. YASMIN [Suspect]
     Indication: PREMENSTRUAL SYNDROME
     Dosage: UNK
     Route: 048
     Dates: start: 20050901, end: 20051101
  2. AMOXICILLIN [Concomitant]
     Dosage: UNK
     Dates: start: 20010201
  3. TRIMETHOPRIM [Concomitant]
     Dosage: UNK
     Dates: start: 20010401
  4. AUGMENTIN '125' [Concomitant]
     Route: 048
  5. AMOXICILLIN [Concomitant]
     Dosage: UNK
     Dates: start: 20050901
  6. FLONASE [Concomitant]
  7. YASMIN [Suspect]
  8. YASMIN [Suspect]
     Indication: MENSTRUAL CYCLE MANAGEMENT
     Route: 048
  9. SULFAMETHOXAZOLE [Concomitant]
     Dosage: UNK
     Dates: start: 20010401
  10. CLARINEX [LORATADINE,PSEUDOEPHEDRINE SULFATE] [Concomitant]
  11. ALBUTEROL SULFATE AUTOHALER [Concomitant]
     Route: 048
  12. CEFADROXIL [Concomitant]
     Dosage: UNK
     Dates: start: 20021001
  13. TYLENOL 1 [Concomitant]
     Route: 048

REACTIONS (8)
  - COSTOCHONDRITIS [None]
  - INJURY [None]
  - PAIN [None]
  - CHEST PAIN [None]
  - DYSPNOEA [None]
  - PULMONARY EMBOLISM [None]
  - PNEUMONIA [None]
  - ANXIETY [None]
